FAERS Safety Report 8399679-1 (Version None)
Quarter: 2012Q1

REPORT INFORMATION
  Report Type: 
  Country: None (occurrence: None)
  Receive Date: 20120323
  Receipt Date: 20110819
  Transmission Date: 20120608
  Serious: Yes (Hospitalization)
  Sender: FDA-Public Use
  Company Number: 163-21880-11072361

PATIENT
  Age: 50 Year
  Sex: Male
  Weight: 102.9665 kg

DRUGS (8)
  1. REVLIMID [Suspect]
     Indication: MULTIPLE MYELOMA
     Dosage: 25 MG, QD X 21 DAYS, PO ; 10 MG, QD X 21 DAYS, PO
     Route: 048
     Dates: start: 20110215
  2. REVLIMID [Suspect]
     Indication: MULTIPLE MYELOMA
     Dosage: 25 MG, QD X 21 DAYS, PO ; 10 MG, QD X 21 DAYS, PO
     Route: 048
     Dates: start: 20110824
  3. NEURONTIN [Concomitant]
  4. CALCIUM CARBONATE [Concomitant]
  5. VITAMIN B COMPLEX (B-KOMPLEX ^LECIVA^) [Concomitant]
  6. LORTAB [Concomitant]
  7. MULTIPLE VITAMINS (MULTIPLE VITAMINS) [Concomitant]
  8. NEXIUM [Concomitant]

REACTIONS (1)
  - DEEP VEIN THROMBOSIS [None]
